FAERS Safety Report 20519854 (Version 1)
Quarter: 2022Q1

REPORT INFORMATION
  Report Type: Other
  Country: CA (occurrence: CA)
  Receive Date: 20220225
  Receipt Date: 20220225
  Transmission Date: 20220423
  Serious: Yes (Other)
  Sender: FDA-Public Use
  Company Number: CA-GE HEALTHCARE-2022CSU001255

PATIENT
  Age: 58 Year
  Sex: Female

DRUGS (3)
  1. OMNIPAQUE [Suspect]
     Active Substance: IOHEXOL
     Indication: Diagnostic procedure
     Dosage: UNK UNK, SINGLE
     Route: 065
  2. OMNIPAQUE [Suspect]
     Active Substance: IOHEXOL
     Indication: Product used for unknown indication
  3. DIPHENHYDRAMINE HYDROCHLORIDE [Concomitant]
     Active Substance: DIPHENHYDRAMINE HYDROCHLORIDE
     Route: 030

REACTIONS (5)
  - Throat irritation [Unknown]
  - Sneezing [Unknown]
  - Abdominal pain upper [Unknown]
  - Chest discomfort [Unknown]
  - Pruritus [Unknown]
